FAERS Safety Report 16881327 (Version 1)
Quarter: 2019Q4

REPORT INFORMATION
  Report Type: Spontaneous
  Country: US (occurrence: US)
  Receive Date: 20191003
  Receipt Date: 20191003
  Transmission Date: 20200122
  Serious: Yes (Death, Hospitalization)
  Sender: FDA-Public Use
  Company Number: US-HIKMA PHARMACEUTICALS USA INC.-US-H14001-19-05121

PATIENT
  Age: 62 Year
  Sex: Male

DRUGS (7)
  1. DOCETAXEL. [Suspect]
     Active Substance: DOCETAXEL
     Indication: HORMONE-REFRACTORY PROSTATE CANCER
     Route: 042
  2. PAZOPANIB [Suspect]
     Active Substance: PAZOPANIB
     Indication: HORMONE-REFRACTORY PROSTATE CANCER
     Route: 048
  3. DOCETAXEL. [Suspect]
     Active Substance: DOCETAXEL
     Route: 065
  4. PAZOPANIB [Suspect]
     Active Substance: PAZOPANIB
     Route: 048
  5. PREDNISONE. [Suspect]
     Active Substance: PREDNISONE
     Indication: HORMONE-REFRACTORY PROSTATE CANCER
     Route: 065
  6. PAZOPANIB [Suspect]
     Active Substance: PAZOPANIB
     Route: 048
  7. PAZOPANIB [Suspect]
     Active Substance: PAZOPANIB
     Route: 048

REACTIONS (8)
  - Respiratory failure [Fatal]
  - Hypocalcaemia [Unknown]
  - Pleural effusion [Unknown]
  - Dehydration [Unknown]
  - Pneumonia [Unknown]
  - Muscular weakness [Unknown]
  - Neutropenia [Unknown]
  - Toxicity to various agents [Unknown]
